FAERS Safety Report 11011243 (Version 1)
Quarter: 2015Q2

REPORT INFORMATION
  Report Type: Spontaneous
  Country: US (occurrence: US)
  Receive Date: 20150410
  Receipt Date: 20150410
  Transmission Date: 20150821
  Serious: Yes (Other)
  Sender: FDA-Public Use
  Company Number: US-ASTRAZENECA-2015SE32615

PATIENT
  Age: 887 Month
  Sex: Female
  Weight: 62.1 kg

DRUGS (2)
  1. CRESTOR [Suspect]
     Active Substance: ROSUVASTATIN CALCIUM
     Indication: BLOOD CHOLESTEROL DECREASED
     Route: 048
     Dates: start: 201503
  2. EXEMESTANE. [Concomitant]
     Active Substance: EXEMESTANE
     Indication: NEOPLASM MALIGNANT
     Route: 065

REACTIONS (6)
  - Visual impairment [Unknown]
  - Impaired driving ability [Unknown]
  - Intentional product misuse [Unknown]
  - Balance disorder [Unknown]
  - Confusional state [Unknown]
  - Condition aggravated [Unknown]

NARRATIVE: CASE EVENT DATE: 201503
